FAERS Safety Report 13816207 (Version 1)
Quarter: 2017Q3

REPORT INFORMATION
  Report Type: Spontaneous
  Country: US (occurrence: US)
  Receive Date: 20170731
  Receipt Date: 20170731
  Transmission Date: 20171127
  Serious: No
  Sender: FDA-Public Use
  Company Number: US-JNJFOC-20170322187

PATIENT
  Age: 78 Year
  Sex: Male
  Weight: 74.84 kg

DRUGS (3)
  1. ZYRTEC [Suspect]
     Active Substance: CETIRIZINE HYDROCHLORIDE
     Route: 048
  2. ZYRTEC [Suspect]
     Active Substance: CETIRIZINE HYDROCHLORIDE
     Indication: MULTIPLE ALLERGIES
     Route: 048
  3. RHINOCORT ALLERGY [Suspect]
     Active Substance: BUDESONIDE
     Indication: MULTIPLE ALLERGIES
     Dosage: 2 SPRAYS IN EACH NOSTRIL; USED FOR ABOUT 2 DAYS
     Route: 045
     Dates: start: 201703, end: 201703

REACTIONS (1)
  - Drug ineffective [Unknown]
